FAERS Safety Report 11572731 (Version 1)
Quarter: 2015Q3

REPORT INFORMATION
  Report Type: Spontaneous
  Country: US (occurrence: US)
  Receive Date: 20150929
  Receipt Date: 20150929
  Transmission Date: 20151125
  Serious: Yes (Other)
  Sender: FDA-Public Use
  Company Number: US-AKORN PHARMACEUTICALS-2015AKN00549

PATIENT
  Sex: Male

DRUGS (1)
  1. THERATEARS [Suspect]
     Active Substance: CARBOXYMETHYLCELLULOSE SODIUM
     Dosage: 2.4 ML, UNK
     Route: 047
     Dates: start: 201508

REACTIONS (2)
  - Ocular hyperaemia [None]
  - Superficial injury of eye [Recovered/Resolved]
